FAERS Safety Report 12575966 (Version 1)
Quarter: 2016Q3

REPORT INFORMATION
  Report Type: Report from Study
  Country: US (occurrence: US)
  Receive Date: 20160720
  Receipt Date: 20160720
  Transmission Date: 20161109
  Serious: Yes (Other)
  Sender: FDA-Public Use
  Company Number: GXBR2016US002257

PATIENT
  Age: 35 Year
  Sex: Female

DRUGS (1)
  1. RIBAVIRIN CAPSULES [Suspect]
     Active Substance: RIBAVIRIN
     Indication: PRODUCT USED FOR UNKNOWN INDICATION
     Dosage: PATERNAL EXPOSURE PRIOR TO PREGNANCY
     Route: 050

REACTIONS (2)
  - Exposure via father [Unknown]
  - Blighted ovum [Unknown]
